FAERS Safety Report 17873747 (Version 4)
Quarter: 2021Q1

REPORT INFORMATION
  Report Type: Report from Study
  Country: KR (occurrence: KR)
  Receive Date: 20200609
  Receipt Date: 20210226
  Transmission Date: 20210419
  Serious: Yes (Hospitalization, Other)
  Sender: FDA-Public Use
  Company Number: KR-AMGEN-KORNI2020090589

PATIENT
  Age: 69 Year
  Sex: Female
  Weight: 58.9 kg

DRUGS (13)
  1. CARFILZOMIB [Suspect]
     Active Substance: CARFILZOMIB
     Indication: PLASMA CELL MYELOMA
     Dosage: 20 MILLIGRAM/SQ. METER
     Route: 042
     Dates: start: 20200222
  2. SEPTRIN [Concomitant]
     Active Substance: SULFAMETHOXAZOLE\TRIMETHOPRIM
     Dosage: 1 UNK
     Dates: start: 20200224, end: 20200325
  3. LASIX [Concomitant]
     Active Substance: FUROSEMIDE
     Dosage: 1 UNK
     Dates: start: 20200301, end: 20200330
  4. GANAKHAN [Concomitant]
     Dosage: 1 UNK
     Dates: start: 20200304, end: 20200322
  5. DICAMAX [Concomitant]
     Dosage: 1250 MILLIGRAM
     Dates: start: 20200128
  6. CARFILZOMIB [Suspect]
     Active Substance: CARFILZOMIB
     Dosage: 56 MILLIGRAM/SQ. METER
     Route: 042
  7. DEXAMETHASONE. [Concomitant]
     Active Substance: DEXAMETHASONE
     Indication: PLASMA CELL MYELOMA
     Dosage: 20 MILLIGRAM
     Dates: start: 20200222, end: 20200309
  8. ZOYLEX [ACICLOVIR] [Concomitant]
     Dosage: 1 UNK
     Dates: start: 20200224, end: 20200325
  9. TARGIN [Concomitant]
     Active Substance: NALOXONE HYDROCHLORIDE\OXYCODONE HYDROCHLORIDE
     Dosage: 5 MILLIGRAM
     Dates: start: 20200221
  10. LEVOFEXIN [Concomitant]
     Active Substance: LEVOFLOXACIN
     Dosage: 1 UNK
     Dates: start: 20200224, end: 20200325
  11. PARAMACET [Concomitant]
     Active Substance: ACETAMINOPHEN\TRAMADOL
     Dosage: 1 UNK
     Dates: start: 20200225, end: 20200311
  12. SEROQUEL [Concomitant]
     Active Substance: QUETIAPINE FUMARATE
     Dosage: 0.5 UNK
     Dates: start: 20200224, end: 20200407
  13. BEARSE [Concomitant]
     Active Substance: DIMETHICONE\PANCRELIPASE\URSODIOL
     Dosage: 1 UNK
     Dates: start: 20200302, end: 20200307

REACTIONS (1)
  - Cardiac dysfunction [Recovered/Resolved]

NARRATIVE: CASE EVENT DATE: 20200309
